FAERS Safety Report 15648537 (Version 1)
Quarter: 2018Q4

REPORT INFORMATION
  Report Type: Other
  Country: US (occurrence: US)
  Receive Date: 20181122
  Receipt Date: 20181122
  Transmission Date: 20190205
  Serious: Yes (Hospitalization, Other)
  Sender: FDA-Public Use
  Company Number: US-ACTELION-A-CH2018-181910

PATIENT
  Age: 3 Month
  Sex: Female

DRUGS (2)
  1. BOSENTAN. [Suspect]
     Active Substance: BOSENTAN
     Indication: PULMONARY HYPERTENSION
     Dosage: UNK
     Route: 048
  2. SILDENAFIL. [Concomitant]
     Active Substance: SILDENAFIL
     Indication: PULMONARY HYPERTENSION

REACTIONS (5)
  - Right ventricular dysfunction [Unknown]
  - Patent ductus arteriosus repair [Unknown]
  - Pulmonary artery therapeutic procedure [Unknown]
  - Reperfusion injury [Unknown]
  - Pulmonary hypertension [Unknown]
